FAERS Safety Report 14580259 (Version 2)
Quarter: 2018Q2

REPORT INFORMATION
  Report Type: Spontaneous
  Country: FR (occurrence: FR)
  Receive Date: 20180228
  Receipt Date: 20180426
  Transmission Date: 20180711
  Serious: Yes (Other)
  Sender: FDA-Public Use
  Company Number: FR-009507513-1802FRA012399

PATIENT
  Age: 81 Year
  Sex: Male
  Weight: 65 kg

DRUGS (8)
  1. INEXIUM (ESOMEPRAZOLE SODIUM) [Suspect]
     Active Substance: ESOMEPRAZOLE SODIUM
     Dosage: UNKNOWN
     Route: 048
  2. LIPTRUZET [Suspect]
     Active Substance: ATORVASTATIN CALCIUM\EZETIMIBE
     Dosage: UNKNOWN
     Route: 048
  3. EXFORGE [Suspect]
     Active Substance: AMLODIPINE BESYLATE\VALSARTAN
     Dosage: UNKNOWN
     Route: 048
  4. IMBRUVICA [Suspect]
     Active Substance: IBRUTINIB
     Indication: B-CELL LYMPHOMA STAGE IV
     Dosage: 420 MG, QD
     Route: 048
     Dates: start: 20171009, end: 20180103
  5. ZINNAT (CEFUROXIME AXETIL) [Suspect]
     Active Substance: CEFUROXIME AXETIL
     Indication: SINUSITIS
     Dosage: UNKNOWN
     Route: 048
     Dates: start: 20171228, end: 201801
  6. IZALGI [Suspect]
     Active Substance: ACETAMINOPHEN\OPIUM
     Indication: SINUSITIS
     Dosage: INCONNUE
     Route: 048
     Dates: start: 20171228, end: 201801
  7. PENTACARINAT [Suspect]
     Active Substance: PENTAMIDINE ISETHIONATE
     Dosage: UNK
     Route: 055
  8. KARDEGIC [Suspect]
     Active Substance: ASPIRIN DL-LYSINE
     Dosage: UNKNOWN
     Route: 048

REACTIONS (1)
  - Nephrotic syndrome [Not Recovered/Not Resolved]

NARRATIVE: CASE EVENT DATE: 20180118
